FAERS Safety Report 7791550-9 (Version None)
Quarter: 2011Q4

REPORT INFORMATION
  Report Type: 
  Country: None (occurrence: None)
  Receive Date: 20111003
  Receipt Date: 20110921
  Transmission Date: 20120403
  Serious: Yes (Other)
  Sender: FDA-Public Use
  Company Number: US-BAYER-2011-089478

PATIENT
  Age: 28 Year
  Sex: Female

DRUGS (2)
  1. DROSPIRENONE AND ETHINYL ESTRADIOL [Suspect]
     Dosage: UNK
     Dates: start: 20050401, end: 20060101
  2. YASMIN [Suspect]
     Dosage: UNK
     Dates: start: 20081101, end: 20090701

REACTIONS (3)
  - PAIN [None]
  - PULMONARY EMBOLISM [None]
  - DYSPNOEA [None]
